FAERS Safety Report 19186020 (Version 1)
Quarter: 2021Q2

REPORT INFORMATION
  Report Type: Spontaneous
  Country: US (occurrence: US)
  Receive Date: 20210427
  Receipt Date: 20210427
  Transmission Date: 20210717
  Serious: No
  Sender: FDA-Public Use
  Company Number: US-TEVA-2021-US-1903629

PATIENT
  Age: 92 Year
  Sex: Female

DRUGS (1)
  1. TROSPIUM [Suspect]
     Active Substance: TROSPIUM
     Dosage: FORM OF ADMIN: EXTENDED?RELEASE CAPSULES
     Route: 065

REACTIONS (1)
  - Dysphagia [Unknown]
